FAERS Safety Report 20825652 (Version 1)
Quarter: 2022Q2

REPORT INFORMATION
  Report Type: Spontaneous
  Country: US (occurrence: US)
  Receive Date: 20220513
  Receipt Date: 20220513
  Transmission Date: 20220720
  Serious: No
  Sender: FDA-Public Use
  Company Number: US-BoehringerIngelheim-2022-BI-170433

PATIENT
  Sex: Female
  Weight: 73 kg

DRUGS (2)
  1. MOBIC [Suspect]
     Active Substance: MELOXICAM
     Indication: Osteoarthritis
     Route: 048
  2. MOBIC [Suspect]
     Active Substance: MELOXICAM
     Indication: Rheumatoid arthritis

REACTIONS (2)
  - Arthritis [Unknown]
  - Pain [Unknown]
